FAERS Safety Report 21839097 (Version 1)
Quarter: 2023Q1

REPORT INFORMATION
  Report Type: Spontaneous
  Country: US (occurrence: None)
  Receive Date: 20230108
  Receipt Date: 20230108
  Transmission Date: 20230417
  Serious: Yes (Hospitalization)
  Sender: FDA-Public Use
  Company Number: None

PATIENT
  Age: 74 Year
  Sex: Male
  Weight: 73 kg

DRUGS (1)
  1. WARFARIN SODIUM [Suspect]
     Active Substance: WARFARIN SODIUM
     Indication: Atrial fibrillation
     Dosage: 2.5 MG EVERY DAY PO?
     Route: 048
     Dates: start: 20211207, end: 20220420

REACTIONS (4)
  - Gastrointestinal haemorrhage [None]
  - Anaemia [None]
  - International normalised ratio increased [None]
  - Gastric ulcer [None]

NARRATIVE: CASE EVENT DATE: 20220420
